FAERS Safety Report 8963960 (Version 6)
Quarter: 2014Q1

REPORT INFORMATION
  Report Type: Spontaneous
  Country: SE (occurrence: SE)
  Receive Date: 20121214
  Receipt Date: 20140204
  Transmission Date: 20141002
  Serious: Yes (Hospitalization, Other)
  Sender: FDA-Public Use
  Company Number: SE-PFIZER INC-2012316801

PATIENT
  Age: 69 Year
  Sex: Male
  Weight: 120 kg

DRUGS (7)
  1. CORDARONE [Suspect]
     Indication: ARRHYTHMIA
     Dosage: 200 MG DAILY IN THE MORNING
     Route: 048
     Dates: start: 201202, end: 201211
  2. CORDARONE [Suspect]
     Dosage: 300 MG, DAILY
     Route: 048
     Dates: start: 201211
  3. NORVASC [Concomitant]
     Dosage: UNK
  4. TENORMIN [Concomitant]
     Dosage: 150 MG, UNK
  5. RENITEC [Concomitant]
     Dosage: UNK
  6. WARAN [Concomitant]
     Dosage: UNK
  7. TRAMADOL [Concomitant]
     Dosage: 50 MG ,4-5 TABLETS, DAILY

REACTIONS (7)
  - Cardiac disorder [Recovered/Resolved]
  - Atrial fibrillation [Recovered/Resolved]
  - Pulse abnormal [Recovered/Resolved]
  - Renal pain [Not Recovered/Not Resolved]
  - Myalgia [Not Recovered/Not Resolved]
  - Cardiac failure [Unknown]
  - Headache [Unknown]
